FAERS Safety Report 25369669 (Version 1)
Quarter: 2025Q2

REPORT INFORMATION
  Report Type: Spontaneous
  Country: PL (occurrence: PL)
  Receive Date: 20250528
  Receipt Date: 20250528
  Transmission Date: 20250717
  Serious: Yes (Other)
  Sender: AMGEN
  Company Number: PL-AMGEN-POLSP2025101119

PATIENT
  Age: 85 Year
  Sex: Male

DRUGS (1)
  1. VECTIBIX [Suspect]
     Active Substance: PANITUMUMAB
     Indication: Adenocarcinoma of colon
     Dosage: 6 MILLIGRAM/KILOGRAM, Q2WK
     Route: 065
     Dates: start: 20241011, end: 20250122

REACTIONS (4)
  - Cardiac disorder [Unknown]
  - Ill-defined disorder [Unknown]
  - Bedridden [Unknown]
  - Rash maculo-papular [Unknown]
